FAERS Safety Report 5370348-5 (Version None)
Quarter: 2007Q2

REPORT INFORMATION
  Report Type: 
  Country: None (occurrence: None)
  Receive Date: 20070626
  Receipt Date: 20061127
  Transmission Date: 20071010
  Serious: Yes (Death)
  Sender: FDA-Public Use
  Company Number: US-AMGEN-US200471

PATIENT
  Sex: Male
  Weight: 71.7 kg

DRUGS (9)
  1. ARANESP [Suspect]
     Indication: ANAEMIA OF MALIGNANT DISEASE
     Route: 058
     Dates: start: 20061005, end: 20061026
  2. NEUPOGEN [Concomitant]
     Indication: CHEMOTHERAPY
     Route: 058
     Dates: start: 20060921, end: 20060927
  3. NEULASTA [Concomitant]
     Indication: CHEMOTHERAPY
     Route: 058
     Dates: start: 20061006, end: 20061006
  4. ADRIAMYCIN PFS [Concomitant]
     Dates: start: 20061005, end: 20061005
  5. VINCRISTINE [Concomitant]
     Dates: start: 20061005, end: 20061005
  6. CYTOXAN [Concomitant]
     Dates: start: 20061005, end: 20061005
  7. MORPHINE [Concomitant]
  8. COLACE [Concomitant]
  9. NEXIUM [Concomitant]

REACTIONS (1)
  - MALIGNANT NEOPLASM PROGRESSION [None]
